FAERS Safety Report 17076053 (Version 1)
Quarter: 2019Q4

REPORT INFORMATION
  Report Type: Spontaneous
  Country: US (occurrence: US)
  Receive Date: 20191126
  Receipt Date: 20191126
  Transmission Date: 20200122
  Serious: No
  Sender: FDA-Public Use
  Company Number: US-009507513-1911USA007207

PATIENT
  Age: 27 Year
  Sex: Male

DRUGS (6)
  1. SINGULAIR [Suspect]
     Active Substance: MONTELUKAST SODIUM
     Indication: URTICARIA CHOLINERGIC
     Dosage: UNK
     Route: 048
  2. CIMETIDINE [Concomitant]
     Active Substance: CIMETIDINE
     Indication: URTICARIA CHOLINERGIC
  3. DOXEPIN HYDROCHLORIDE. [Concomitant]
     Active Substance: DOXEPIN HYDROCHLORIDE
     Indication: URTICARIA CHOLINERGIC
  4. CYPROHEPTADINE HYDROCHLORIDE. [Concomitant]
     Active Substance: CYPROHEPTADINE HYDROCHLORIDE
     Indication: URTICARIA CHOLINERGIC
  5. OMALIZUMAB. [Concomitant]
     Active Substance: OMALIZUMAB
     Dosage: 300 MILLIGRAM, QOW
  6. OMALIZUMAB. [Concomitant]
     Active Substance: OMALIZUMAB
     Indication: URTICARIA CHOLINERGIC
     Dosage: 300 MILLIGRAM, QM

REACTIONS (1)
  - Product use in unapproved indication [Unknown]
